FAERS Safety Report 19479872 (Version 1)
Quarter: 2021Q3

REPORT INFORMATION
  Report Type: Spontaneous
  Country: US (occurrence: US)
  Receive Date: 20210701
  Receipt Date: 20210701
  Transmission Date: 20211014
  Serious: Yes (Other)
  Sender: FDA-Public Use
  Company Number: US-DRREDDYS-LIT/USA/21/0137179

PATIENT
  Age: 54 Year
  Sex: Female

DRUGS (1)
  1. AZACITIDINE. [Suspect]
     Active Substance: AZACITIDINE
     Indication: MYELODYSPLASTIC SYNDROME
     Dosage: 3RD CYCLE OF CHEMOTHERAPY

REACTIONS (3)
  - Traumatic lung injury [Unknown]
  - Thrombocytopenia [Unknown]
  - Pulmonary alveolar haemorrhage [Unknown]
